FAERS Safety Report 4716686-8 (Version None)
Quarter: 2005Q3

REPORT INFORMATION
  Report Type: 
  Country: None (occurrence: None)
  Receive Date: 20050718
  Receipt Date: 20050707
  Transmission Date: 20060218
  Serious: Yes (Disabling)
  Sender: FDA-Public Use
  Company Number: GXKR2005ES01311

PATIENT
  Age: 67 Year
  Sex: Female

DRUGS (1)
  1. ENALAPRIL SANDOZ (NGX) (ENALAPRIL MALEATE)UNKNOWN [Suspect]
     Dosage: 20 MG ORAL
     Route: 048
     Dates: start: 20031118

REACTIONS (4)
  - CHEST PAIN [None]
  - COUGH [None]
  - MEDIASTINAL DISORDER [None]
  - RESPIRATORY DISORDER [None]
